FAERS Safety Report 6825400-1 (Version None)
Quarter: 2010Q3

REPORT INFORMATION
  Report Type: 
  Country: None (occurrence: None)
  Receive Date: 20100708
  Receipt Date: 20070102
  Transmission Date: 20110219
  Serious: No
  Sender: FDA-Public Use
  Company Number: US-PFIZER INC-2007001794

PATIENT
  Sex: Female
  Weight: 62.6 kg

DRUGS (7)
  1. CHANTIX [Suspect]
     Indication: SMOKING CESSATION THERAPY
     Dates: start: 20061201
  2. ALBUTEROL [Concomitant]
     Indication: ASTHMA
     Route: 055
  3. COMBIVENT [Concomitant]
     Indication: ASTHMA
     Route: 055
  4. IMIPRAMINE [Concomitant]
  5. TERAZOSIN HCL [Concomitant]
  6. DYAZIDE [Concomitant]
  7. POTASSIUM CHLORIDE [Concomitant]

REACTIONS (5)
  - ABNORMAL DREAMS [None]
  - CHILLS [None]
  - HYPERHIDROSIS [None]
  - INSOMNIA [None]
  - PARAESTHESIA [None]
